FAERS Safety Report 17551524 (Version 5)
Quarter: 2021Q3

REPORT INFORMATION
  Report Type: Report from Study
  Country: US (occurrence: US)
  Receive Date: 20200317
  Receipt Date: 20210930
  Transmission Date: 20211014
  Serious: Yes (Hospitalization, Other)
  Sender: FDA-Public Use
  Company Number: US-SA-2020SA061074

PATIENT
  Age: 50 Year
  Sex: Male

DRUGS (4)
  1. DUPILUMAB [Suspect]
     Active Substance: DUPILUMAB
     Indication: DERMATITIS ATOPIC
     Dosage: 600 MG, 1X
     Route: 058
     Dates: start: 2020, end: 2020
  2. DUPILUMAB [Suspect]
     Active Substance: DUPILUMAB
     Dosage: 2 DF, 1X
     Route: 058
     Dates: start: 2021, end: 2021
  3. DUPILUMAB [Suspect]
     Active Substance: DUPILUMAB
     Dosage: 1 DF, 1X
     Route: 058
     Dates: start: 2021, end: 2021
  4. DUPILUMAB [Suspect]
     Active Substance: DUPILUMAB
     Indication: ECZEMA
     Dosage: 300 MG, QOW
     Route: 058
     Dates: start: 20200225

REACTIONS (34)
  - Oropharyngeal discomfort [Unknown]
  - Hallucinations, mixed [Unknown]
  - Renal failure [Unknown]
  - Skin ulcer [Unknown]
  - Anxiety [Unknown]
  - Injection site erythema [Unknown]
  - Eczema [Unknown]
  - Oral pain [Recovering/Resolving]
  - Swelling [Unknown]
  - Disorientation [Unknown]
  - Nervousness [Unknown]
  - Peripheral swelling [Recovering/Resolving]
  - Feeling hot [Unknown]
  - Injection site bruising [Unknown]
  - Rash erythematous [Unknown]
  - Pruritus [Unknown]
  - Anaphylactic reaction [Unknown]
  - Hepatic failure [Unknown]
  - Ammonia increased [Unknown]
  - Dry throat [Recovering/Resolving]
  - Myalgia [Recovering/Resolving]
  - Ear pain [Recovering/Resolving]
  - Rash papular [Unknown]
  - Road traffic accident [Unknown]
  - Paraesthesia [Unknown]
  - Injection site discomfort [Recovering/Resolving]
  - Inappropriate schedule of product administration [Unknown]
  - Respiratory rate increased [Recovering/Resolving]
  - Fatigue [Recovering/Resolving]
  - Oropharyngeal pain [Recovering/Resolving]
  - Insomnia [Recovering/Resolving]
  - Dry mouth [Recovering/Resolving]
  - Pain in extremity [Recovering/Resolving]
  - Erythema [Unknown]

NARRATIVE: CASE EVENT DATE: 20200312
